FAERS Safety Report 9287939 (Version 1)
Quarter: 2013Q2

REPORT INFORMATION
  Report Type: Spontaneous
  Country: US (occurrence: US)
  Receive Date: 20130514
  Receipt Date: 20130514
  Transmission Date: 20140414
  Serious: Yes (Hospitalization)
  Sender: FDA-Public Use
  Company Number: US-BAYER-2013-058139

PATIENT
  Age: 48 Year
  Sex: Female

DRUGS (5)
  1. YAZ [Suspect]
  2. DOXYCYCLINE HYCLATE [DOXYCYCLINE HYCLATE] [Concomitant]
     Dosage: 100 MG, EVERYDAY
  3. ZYRTEC [Concomitant]
     Dosage: 10 MG, UNK
  4. ORTHO-CEPT [Concomitant]
  5. ACETAMINOPHEN [Concomitant]

REACTIONS (2)
  - Pulmonary embolism [Recovered/Resolved]
  - Deep vein thrombosis [None]
